FAERS Safety Report 9103585 (Version 1)
Quarter: 2013Q1

REPORT INFORMATION
  Report Type: Report from Study
  Country: JP (occurrence: JP)
  Receive Date: 20130218
  Receipt Date: 20130218
  Transmission Date: 20140127
  Serious: Yes (Other)
  Sender: FDA-Public Use
  Company Number: JP-GLAXOSMITHKLINE-B0867909A

PATIENT
  Sex: Female
  Weight: 63 kg

DRUGS (5)
  1. LAMICTAL [Suspect]
     Indication: BIPOLAR DISORDER
     Dosage: 2MG PER DAY
     Route: 048
     Dates: start: 20121016, end: 20121203
  2. LIMAS [Concomitant]
     Indication: DEPRESSION
     Route: 048
  3. GABAPEN [Concomitant]
     Indication: DEPRESSION
     Route: 048
  4. DEPAS [Concomitant]
     Indication: DEPRESSION
     Route: 048
  5. DEPAS [Concomitant]
     Indication: DEPRESSION
     Route: 048

REACTIONS (4)
  - Suicidal ideation [Recovered/Resolved]
  - Abdominal discomfort [Recovering/Resolving]
  - Abdominal distension [Recovering/Resolving]
  - Eructation [Recovering/Resolving]
